FAERS Safety Report 5153603-3 (Version None)
Quarter: 2006Q4

REPORT INFORMATION
  Report Type: 
  Country: None (occurrence: None)
  Receive Date: 20061113
  Receipt Date: 20061102
  Transmission Date: 20070319
  Serious: Yes (Other)
  Sender: FDA-Public Use
  Company Number: 2006-02542

PATIENT
  Age: 49 Year
  Sex: Female

DRUGS (3)
  1. VELCADE [Suspect]
     Indication: MULTIPLE MYELOMA
     Dosage: 2.00 MG, INTRAVENOUS
     Route: 042
     Dates: start: 20060613, end: 20060829
  2. DEXAMETHASONE TAB [Concomitant]
  3. CLODRONATE DISODIUM (CLODRONATE DISODIUM) [Concomitant]

REACTIONS (1)
  - DRUG INEFFECTIVE [None]
